FAERS Safety Report 20109684 (Version 1)
Quarter: 2021Q4

REPORT INFORMATION
  Report Type: Report from Study
  Country: CA (occurrence: CA)
  Receive Date: 20211124
  Receipt Date: 20211124
  Transmission Date: 20220303
  Serious: Yes (Other)
  Sender: FDA-Public Use
  Company Number: CA-JNJFOC-20211129192

PATIENT
  Age: 29 Year
  Sex: Female

DRUGS (7)
  1. MACITENTAN [Suspect]
     Active Substance: MACITENTAN
     Indication: Heart disease congenital
     Route: 048
  2. MACITENTAN [Suspect]
     Active Substance: MACITENTAN
     Indication: Right-to-left cardiac shunt
  3. SELEXIPAG [Suspect]
     Active Substance: SELEXIPAG
     Indication: Heart disease congenital
     Route: 065
     Dates: start: 20210524
  4. SELEXIPAG [Suspect]
     Active Substance: SELEXIPAG
     Indication: Right-to-left cardiac shunt
  5. ADCIRCA [Concomitant]
     Active Substance: TADALAFIL
  6. BISOPROLOL [Concomitant]
     Active Substance: BISOPROLOL
  7. ASPIRIN [Concomitant]
     Active Substance: ASPIRIN

REACTIONS (3)
  - Gastric disorder [Not Recovered/Not Resolved]
  - Hyperaesthesia teeth [Not Recovered/Not Resolved]
  - Product dose omission issue [Unknown]
